FAERS Safety Report 8198912-9 (Version None)
Quarter: 2012Q1

REPORT INFORMATION
  Report Type: 
  Country: None (occurrence: None)
  Receive Date: 20120309
  Receipt Date: 20120223
  Transmission Date: 20120608
  Serious: No
  Sender: FDA-Public Use
  Company Number: US-AMGEN-USASP2012012039

PATIENT
  Age: 57 Year
  Sex: Female

DRUGS (5)
  1. VITAMIN D [Concomitant]
  2. MULTI-VITAMINS [Concomitant]
  3. PROLIA [Suspect]
     Indication: OSTEOPOROSIS POSTMENOPAUSAL
     Dosage: UNK UNK, Q6MO
     Dates: start: 20110801
  4. CALCIUM [Concomitant]
     Dosage: UNK, Q6MO
     Route: 058
  5. FISH OIL [Concomitant]

REACTIONS (3)
  - LIMB DISCOMFORT [None]
  - RASH [None]
  - PAIN IN EXTREMITY [None]
